FAERS Safety Report 5448569-2 (Version None)
Quarter: 2007Q3

REPORT INFORMATION
  Report Type: 
  Country: None (occurrence: None)
  Receive Date: 20070911
  Receipt Date: 20070906
  Transmission Date: 20080115
  Serious: Yes (Hospitalization)
  Sender: FDA-Public Use
  Company Number: ES-BRISTOL-MYERS SQUIBB COMPANY-13901236

PATIENT
  Age: 75 Year
  Sex: Female

DRUGS (6)
  1. COAPROVEL TABS 300MG/12.5MG [Suspect]
     Indication: HYPERTENSION
     Route: 048
     Dates: start: 20070701
  2. DEPRAX [Suspect]
     Indication: DEPRESSION
     Route: 048
     Dates: start: 20070501
  3. RISPERIDONE [Suspect]
     Route: 048
     Dates: start: 20060701
  4. ESERTIA [Suspect]
     Indication: DEPRESSION
     Route: 048
     Dates: start: 20001101
  5. TEGRETOL [Suspect]
     Indication: PERSONALITY DISORDER
     Route: 048
     Dates: start: 20040601, end: 20070626
  6. DUPHALAC [Concomitant]
     Route: 048

REACTIONS (3)
  - ANXIETY [None]
  - INAPPROPRIATE ANTIDIURETIC HORMONE SECRETION [None]
  - RESTLESSNESS [None]
